FAERS Safety Report 8737361 (Version 2)
Quarter: 2012Q4

REPORT INFORMATION
  Report Type: Spontaneous
  Country: US (occurrence: None)
  Receive Date: 20120805
  Receipt Date: 20120816
  Transmission Date: 20130627
  Serious: Yes (Hospitalization)
  Sender: FDA-Public Use
  Company Number: US-009088

PATIENT
  Age: 45 Year
  Sex: Female
  Weight: 61.69 kg

DRUGS (1)
  1. TRANEXAMIC ACID [Suspect]
     Indication: MENORRHAGIA
     Dosage: 1300 MG, TID

REACTIONS (3)
  - Deep vein thrombosis [None]
  - Prothrombin time prolonged [None]
  - International normalised ratio increased [None]
